FAERS Safety Report 8580282-5 (Version None)
Quarter: 2012Q2

REPORT INFORMATION
  Report Type: 
  Country: None (occurrence: None)
  Receive Date: 20120423
  Receipt Date: 20100407
  Transmission Date: 20120825
  Serious: Yes (Hospitalization)
  Sender: FDA-Public Use
  Company Number: PHHY2010US21884

PATIENT
  Age: 54 Year
  Sex: Male

DRUGS (1)
  1. EXJADE [Suspect]
     Dosage: 1500 MG, DAILY, ORAL
     Route: 048
     Dates: start: 20100207, end: 20100313

REACTIONS (1)
  - ABDOMINAL DISTENSION [None]
